FAERS Safety Report 24979760 (Version 1)
Quarter: 2025Q1

REPORT INFORMATION
  Report Type: Spontaneous
  Country: MY (occurrence: MY)
  Receive Date: 20250218
  Receipt Date: 20250218
  Transmission Date: 20250408
  Serious: Yes (Life-Threatening)
  Sender: ALKEM
  Company Number: MY-ALKEM LABORATORIES LIMITED-MY-ALKEM-2025-01585

PATIENT

DRUGS (1)
  1. CARBAMAZEPINE [Suspect]
     Active Substance: CARBAMAZEPINE
     Indication: Product used for unknown indication
     Route: 065

REACTIONS (1)
  - Toxicity to various agents [Recovering/Resolving]
